FAERS Safety Report 5856353-0 (Version None)
Quarter: 2008Q3

REPORT INFORMATION
  Report Type: 
  Country: None (occurrence: None)
  Receive Date: 20080821
  Receipt Date: 20080821
  Transmission Date: 20090109
  Serious: Yes (Other)
  Sender: FDA-Public Use
  Company Number: None

PATIENT
  Age: 65 Year
  Sex: Female
  Weight: 117.4816 kg

DRUGS (2)
  1. BYETTA [Suspect]
     Indication: TYPE 1 DIABETES MELLITUS
     Dosage: 5MCG TWICE A DAY
     Dates: start: 20070719, end: 20080817
  2. METFORMIN HCL [Suspect]
     Indication: TYPE 1 DIABETES MELLITUS
     Dosage: 850 MG TWICE A DAY PO
     Route: 048
     Dates: start: 20070605, end: 20080820

REACTIONS (13)
  - ARTHROPOD BITE [None]
  - ASTHENIA [None]
  - CRYING [None]
  - DEHYDRATION [None]
  - DEPRESSION [None]
  - DIARRHOEA [None]
  - ERYTHEMA [None]
  - FATIGUE [None]
  - GASTROINTESTINAL PAIN [None]
  - HAIR DISORDER [None]
  - PHARMACEUTICAL PRODUCT COMPLAINT [None]
  - PRURITUS [None]
  - RASH [None]
